FAERS Safety Report 23552650 (Version 4)
Quarter: 2024Q1

REPORT INFORMATION
  Report Type: Spontaneous
  Country: US (occurrence: US)
  Receive Date: 20240222
  Receipt Date: 20240328
  Transmission Date: 20240409
  Serious: No
  Sender: FDA-Public Use
  Company Number: US-PFIZER INC-202400036905

PATIENT
  Age: 4 Year
  Sex: Male
  Weight: 12.25 kg

DRUGS (2)
  1. GENOTROPIN [Suspect]
     Active Substance: SOMATROPIN
     Indication: Short stature
     Dosage: ONCE A DAY AT NIGHT
  2. GENOTROPIN [Suspect]
     Active Substance: SOMATROPIN
     Dosage: 0.5 MG, DAILY

REACTIONS (5)
  - Incorrect dose administered by device [Unknown]
  - Product storage error [Unknown]
  - Product dose omission issue [Unknown]
  - Device leakage [Unknown]
  - Device mechanical issue [Unknown]
